FAERS Safety Report 6701933-3 (Version None)
Quarter: 2010Q2

REPORT INFORMATION
  Report Type: 
  Country: None (occurrence: None)
  Receive Date: 20100427
  Receipt Date: 20100420
  Transmission Date: 20101027
  Serious: Yes (Death)
  Sender: FDA-Public Use
  Company Number: 2010US001322

PATIENT
  Age: 60 Year
  Sex: Male
  Weight: 79 kg

DRUGS (6)
  1. PROGRAF [Suspect]
     Indication: LIVER TRANSPLANT
     Dosage: 2 MG, UID/QD, ORAL
     Route: 048
     Dates: start: 20090708, end: 20100302
  2. CARDURA [Concomitant]
  3. INSULIN (INSULIN) [Concomitant]
  4. MIRALAX [Concomitant]
  5. MAGNESIUM OXIDE (MAGNESIUM OXIDE) [Concomitant]
  6. ARANESP [Concomitant]

REACTIONS (1)
  - DEATH [None]
